FAERS Safety Report 7570359-5 (Version None)
Quarter: 2011Q2

REPORT INFORMATION
  Report Type: 
  Country: None (occurrence: None)
  Receive Date: 20110620
  Receipt Date: 20110603
  Transmission Date: 20111010
  Serious: Yes (Life-Threatening, Hospitalization, Other)
  Sender: FDA-Public Use
  Company Number: 2011MA006771

PATIENT
  Age: 18 Month
  Sex: Female

DRUGS (1)
  1. PROPRANOLOL HCL [Suspect]
     Indication: HAEMANGIOMA
     Dosage: 1.25 MG/KG;QD;PO
     Route: 048

REACTIONS (4)
  - UNRESPONSIVE TO STIMULI [None]
  - CONVULSION [None]
  - BODY TEMPERATURE DECREASED [None]
  - HYPOGLYCAEMIA [None]
